FAERS Safety Report 18417516 (Version 4)
Quarter: 2020Q4

REPORT INFORMATION
  Report Type: Spontaneous
  Country: US (occurrence: US)
  Receive Date: 20201022
  Receipt Date: 20201123
  Transmission Date: 20210114
  Serious: Yes (Hospitalization)
  Sender: FDA-Public Use
  Company Number: US-SEATTLE GENETICS-2020SGN04109

PATIENT
  Sex: Female

DRUGS (3)
  1. TUKYSA [Suspect]
     Active Substance: TUCATINIB
     Indication: BREAST CANCER FEMALE
     Dosage: 300 MG, BID
     Route: 065
  2. CAPECITABINE. [Concomitant]
     Active Substance: CAPECITABINE
     Dosage: 2000MG,14 DAYS ON,7DAYS OFF
  3. HERCEPTIN [Suspect]
     Active Substance: TRASTUZUMAB
     Indication: BREAST CANCER FEMALE
     Dosage: UNK, Q3WEEKS
     Route: 042

REACTIONS (9)
  - Urinary tract infection [Unknown]
  - Partial seizures [Unknown]
  - Memory impairment [Unknown]
  - Contusion [Unknown]
  - Fatigue [Unknown]
  - Product dose omission issue [Unknown]
  - Neuropathy peripheral [Unknown]
  - Diarrhoea [Not Recovered/Not Resolved]
  - Muscle spasms [Unknown]
